FAERS Safety Report 4514525-1 (Version None)
Quarter: 2004Q4

REPORT INFORMATION
  Report Type: 
  Country: None (occurrence: None)
  Receive Date: 20041126
  Receipt Date: 20041123
  Transmission Date: 20050328
  Serious: Yes (Hospitalization)
  Sender: FDA-Public Use
  Company Number: 200413094GDS

PATIENT
  Age: 18 Year
  Sex: Male

DRUGS (5)
  1. ASPIRIN [Suspect]
     Indication: LOCAL SWELLING
     Dates: start: 20000523
  2. ASPIRIN [Suspect]
     Indication: PAIN
     Dates: start: 20000523
  3. ASPIRIN [Suspect]
     Indication: PYREXIA
     Dates: start: 20000523
  4. KOGENATE [Concomitant]
  5. ANTIBIOTICS [Concomitant]

REACTIONS (11)
  - COAGULATION FACTOR VIII LEVEL DECREASED [None]
  - DYSPNOEA [None]
  - EPISTAXIS [None]
  - HAEMATOMA [None]
  - MOUTH HAEMORRHAGE [None]
  - PERITONSILLAR ABSCESS [None]
  - PHARYNGEAL ERYTHEMA [None]
  - PHARYNGEAL HAEMORRHAGE [None]
  - PHARYNGEAL STENOSIS [None]
  - RESPIRATORY DISORDER [None]
  - WHITE BLOOD CELL COUNT INCREASED [None]
